FAERS Safety Report 25782941 (Version 4)
Quarter: 2025Q4

REPORT INFORMATION
  Report Type: Spontaneous
  Country: JP (occurrence: JP)
  Receive Date: 20250909
  Receipt Date: 20251009
  Transmission Date: 20260117
  Serious: No
  Sender: AMGEN
  Company Number: JP-AMGEN-JPNSP2025177745

PATIENT

DRUGS (1)
  1. REPATHA [Suspect]
     Active Substance: EVOLOCUMAB
     Indication: Hypercholesterolaemia
     Dosage: UNK
     Route: 058

REACTIONS (1)
  - Intercepted product administration error [Unknown]

NARRATIVE: CASE EVENT DATE: 20250903
